FAERS Safety Report 8623040-5 (Version None)
Quarter: 2012Q3

REPORT INFORMATION
  Report Type: 
  Country: None (occurrence: None)
  Receive Date: 20120827
  Receipt Date: 20120821
  Transmission Date: 20120928
  Serious: Yes (Hospitalization)
  Sender: FDA-Public Use
  Company Number: NL-JNJFOC-20120810326

PATIENT
  Sex: Male
  Weight: 95 kg

DRUGS (12)
  1. RITUXIMAB [Suspect]
     Indication: DIFFUSE LARGE B-CELL LYMPHOMA
     Dosage: THIRD MAINTENANCE CYCLE
     Route: 042
     Dates: start: 20100906
  2. PREDNISONE TAB [Suspect]
     Indication: DIFFUSE LARGE B-CELL LYMPHOMA
     Route: 048
  3. CYCLOPHOSPHAMIDE [Suspect]
     Indication: DIFFUSE LARGE B-CELL LYMPHOMA
     Dosage: THIRD MAINTENANCE CYCLE
     Route: 042
     Dates: start: 20100906
  4. VINCRISTINE [Suspect]
     Dosage: THIRD MAINTENANCE CYCLE
     Route: 042
     Dates: start: 20100906
  5. DOXORUBICIN HCL [Suspect]
     Indication: DIFFUSE LARGE B-CELL LYMPHOMA
     Route: 042
  6. PREDNISONE TAB [Suspect]
     Dosage: THIRD MAINTENANCE CYCLE
     Route: 048
     Dates: start: 20100906
  7. VINCRISTINE [Suspect]
     Indication: DIFFUSE LARGE B-CELL LYMPHOMA
     Route: 042
  8. CYCLOPHOSPHAMIDE [Suspect]
     Route: 042
  9. NEUPOGEN [Suspect]
     Indication: DIFFUSE LARGE B-CELL LYMPHOMA
     Route: 058
  10. NEUPOGEN [Suspect]
     Dosage: THIRD MAINTENANCE CYCLE
     Route: 058
     Dates: start: 20100907
  11. DOXORUBICIN HCL [Suspect]
     Dosage: THIRD MAINTENANCE CYCLE
     Route: 042
     Dates: start: 20100906
  12. RITUXIMAB [Suspect]
     Route: 042
     Dates: start: 20101129, end: 20110321

REACTIONS (1)
  - CRANIAL NERVE DISORDER [None]
